FAERS Safety Report 20020768 (Version 3)
Quarter: 2022Q1

REPORT INFORMATION
  Report Type: Spontaneous
  Country: ES (occurrence: ES)
  Receive Date: 20211101
  Receipt Date: 20220128
  Transmission Date: 20220423
  Serious: Yes (Other)
  Sender: FDA-Public Use
  Company Number: ES-SA-SAC20210915000440

PATIENT
  Age: 40 Year
  Sex: Female
  Weight: 120.5 kg

DRUGS (5)
  1. TRULICITY [Suspect]
     Active Substance: DULAGLUTIDE
     Indication: Type 2 diabetes mellitus
     Dosage: UNK, QW (SATURDAY)
     Route: 058
  2. INSULIN GLARGINE [Suspect]
     Active Substance: INSULIN GLARGINE
     Indication: Type 2 diabetes mellitus
     Dosage: 58 INTERNATIONAL UNIT, DAILY
     Route: 058
     Dates: start: 2021
  3. INSULIN GLARGINE [Suspect]
     Active Substance: INSULIN GLARGINE
     Dosage: 60 IU
     Route: 058
     Dates: start: 20210831
  4. INSULIN GLARGINE [Suspect]
     Active Substance: INSULIN GLARGINE
     Dosage: 70 INTERNATIONAL UNIT, DAILY
     Route: 058
     Dates: start: 20220107
  5. APIDRA SOLOSTAR [Suspect]
     Active Substance: INSULIN GLULISINE
     Indication: Type 2 diabetes mellitus
     Dosage: 10 IU, Q8H
     Route: 058

REACTIONS (19)
  - Hyperglycaemia [Recovering/Resolving]
  - Food intolerance [Unknown]
  - Decreased appetite [Not Recovered/Not Resolved]
  - Blood glucose decreased [Recovered/Resolved]
  - Abdominal pain upper [Recovering/Resolving]
  - Weight decreased [Unknown]
  - Peripheral coldness [Recovered/Resolved]
  - Renal pain [Recovered/Resolved]
  - Gait disturbance [Unknown]
  - Anxiety [Not Recovered/Not Resolved]
  - Hunger [Not Recovered/Not Resolved]
  - Headache [Recovered/Resolved]
  - Muscular weakness [Recovered/Resolved]
  - Illness [Recovered/Resolved]
  - Sluggishness [Unknown]
  - Hypoglycaemia [Recovered/Resolved]
  - Malaise [Recovered/Resolved]
  - Vomiting [Recovering/Resolving]
  - Nausea [Unknown]

NARRATIVE: CASE EVENT DATE: 20210101
